FAERS Safety Report 7601747-6 (Version None)
Quarter: 2011Q3

REPORT INFORMATION
  Report Type: 
  Country: None (occurrence: None)
  Receive Date: 20110711
  Receipt Date: 20110705
  Transmission Date: 20111222
  Serious: Yes (Hospitalization, Other)
  Sender: FDA-Public Use
  Company Number: BR-PFIZER INC-2011146350

PATIENT
  Age: 57 Year
  Sex: Male

DRUGS (6)
  1. CLINDAMYCIN HCL [Suspect]
     Dosage: UNK
     Dates: start: 20110624, end: 20110629
  2. NEXIUM [Concomitant]
  3. NICOTINE [Concomitant]
  4. PROPRANOLOL [Concomitant]
  5. ROCEPHIN [Concomitant]
  6. LASIX [Concomitant]

REACTIONS (3)
  - RASH [None]
  - PRURITUS [None]
  - ERYSIPELAS [None]
